FAERS Safety Report 8050056-2 (Version None)
Quarter: 2011Q4

REPORT INFORMATION
  Report Type: 
  Country: None (occurrence: None)
  Receive Date: 20111212
  Receipt Date: 20110811
  Transmission Date: 20120403
  Serious: Yes (Other)
  Sender: FDA-Public Use
  Company Number: PHEH2011US01536

PATIENT
  Age: 50 Year
  Sex: Male
  Weight: 104 kg

DRUGS (2)
  1. INTERFERON BETA-1B [Suspect]
     Indication: MULTIPLE SCLEROSIS
     Dosage: SUBCUTANEOUS
     Route: 058
  2. GLATIRAMER ACETATE (GLATIRAMER ACETATE) [Concomitant]

REACTIONS (2)
  - DEPRESSION [None]
  - DEPRESSED MOOD [None]
